FAERS Safety Report 14673108 (Version 1)
Quarter: 2018Q1

REPORT INFORMATION
  Report Type: Spontaneous
  Country: CA (occurrence: CA)
  Receive Date: 20180323
  Receipt Date: 20180323
  Transmission Date: 20180509
  Serious: Yes (Congenital Anomaly, Other)
  Sender: FDA-Public Use
  Company Number: CA-ABBVIE-18P-028-2294305-00

PATIENT

DRUGS (1)
  1. DEPAKENE [Suspect]
     Active Substance: VALPROIC ACID
     Indication: MATERNAL EXPOSURE TIMING UNSPECIFIED
     Route: 064

REACTIONS (3)
  - Foetal anticonvulsant syndrome [Not Recovered/Not Resolved]
  - Intellectual disability [Not Recovered/Not Resolved]
  - Foetal exposure during pregnancy [Unknown]
